FAERS Safety Report 8593629-0 (Version None)
Quarter: 2012Q3

REPORT INFORMATION
  Report Type: 
  Country: None (occurrence: None)
  Receive Date: 20120814
  Receipt Date: 20120809
  Transmission Date: 20120928
  Serious: Yes (Hospitalization, Other)
  Sender: FDA-Public Use
  Company Number: US-PFIZER INC-2012156724

PATIENT
  Age: 63 Year
  Sex: Male

DRUGS (1)
  1. XALKORI [Suspect]
     Indication: NON-SMALL CELL LUNG CANCER
     Dosage: 250 MG, 2X/DAY
     Route: 048
     Dates: start: 20120516, end: 20120710

REACTIONS (4)
  - HOT FLUSH [None]
  - PULMONARY OEDEMA [None]
  - CONSTIPATION [None]
  - INSOMNIA [None]
